FAERS Safety Report 5619281-1 (Version None)
Quarter: 2008Q1

REPORT INFORMATION
  Report Type: 
  Country: None (occurrence: None)
  Receive Date: 20080205
  Receipt Date: 20080130
  Transmission Date: 20080703
  Serious: Yes (Other)
  Sender: FDA-Public Use
  Company Number: SP01775

PATIENT
  Age: 46 Year
  Sex: Male

DRUGS (1)
  1. MOVIPREP [Suspect]
     Indication: COLONOSCOPY
     Dosage: (ONCE (SPLIT DOSE)),ORAL
     Route: 048
     Dates: start: 20080123, end: 20080124

REACTIONS (2)
  - EYE PAIN [None]
  - EYE SWELLING [None]
